FAERS Safety Report 8739970 (Version 2)
Quarter: 2013Q1

REPORT INFORMATION
  Report Type: Spontaneous
  Country: DE (occurrence: DE)
  Receive Date: 20120823
  Receipt Date: 20130301
  Transmission Date: 20140127
  Serious: Yes (Hospitalization)
  Sender: FDA-Public Use
  Company Number: DE-BMSGILMSD-2012-0059986

PATIENT
  Age: 44 Year
  Sex: Male

DRUGS (1)
  1. ATRIPLA [Suspect]
     Indication: HIV INFECTION
     Route: 048

REACTIONS (3)
  - Road traffic accident [Unknown]
  - Fracture [Unknown]
  - Transient psychosis [Unknown]
